FAERS Safety Report 16715918 (Version 1)
Quarter: 2019Q3

REPORT INFORMATION
  Report Type: Spontaneous
  Country: US (occurrence: FR)
  Receive Date: 20190819
  Receipt Date: 20190819
  Transmission Date: 20191005
  Serious: Yes (Other)
  Sender: FDA-Public Use
  Company Number: US-SUNOVION-2019SUN003436

PATIENT

DRUGS (2)
  1. INDACATEROL AND GLYCOPYRROLATE [Suspect]
     Active Substance: GLYCOPYRROLATE\INDACATEROL MALEATE
     Dosage: UNK
     Route: 065
     Dates: start: 20190804
  2. INDACATEROL AND GLYCOPYRROLATE [Suspect]
     Active Substance: GLYCOPYRROLATE\INDACATEROL MALEATE
     Indication: ASTHMA
     Dosage: 1 DF, QD
     Route: 055
     Dates: start: 201906

REACTIONS (2)
  - Off label use [Unknown]
  - Asthmatic crisis [Unknown]
